FAERS Safety Report 7538274-0 (Version None)
Quarter: 2011Q2

REPORT INFORMATION
  Report Type: 
  Country: None (occurrence: None)
  Receive Date: 20110609
  Receipt Date: 20030313
  Transmission Date: 20111010
  Serious: Yes (Death)
  Sender: FDA-Public Use
  Company Number: PHFR2003GB00671

PATIENT
  Sex: Male

DRUGS (5)
  1. DIAZEPAM [Concomitant]
     Dosage: 5 MG, BID
     Route: 048
     Dates: end: 20030105
  2. CLOZAPINE [Suspect]
     Dosage: 350 MG, QD
     Route: 048
     Dates: start: 19980722, end: 20030105
  3. RANITIDINE [Concomitant]
     Dosage: 150 MG, BID
     Route: 048
     Dates: end: 20030105
  4. CHLORPROMAZINE [Concomitant]
     Route: 048
     Dates: end: 20030105
  5. CLOZAPINE [Suspect]
     Indication: SCHIZOPHRENIA
     Dosage: 700 MG, QD
     Route: 048
     Dates: start: 19930406

REACTIONS (17)
  - SELF-INDUCED VOMITING [None]
  - PROTEIN TOTAL DECREASED [None]
  - BLOOD ALBUMIN DECREASED [None]
  - C-REACTIVE PROTEIN INCREASED [None]
  - DECREASED APPETITE [None]
  - WEIGHT DECREASED [None]
  - GAMMA-GLUTAMYLTRANSFERASE INCREASED [None]
  - BLOOD ALKALINE PHOSPHATASE INCREASED [None]
  - YELLOW SKIN [None]
  - TRANSAMINASES INCREASED [None]
  - DYSPNOEA [None]
  - PAIN [None]
  - CARCINOEMBRYONIC ANTIGEN INCREASED [None]
  - ASCITES [None]
  - METASTASES TO LIVER [None]
  - SOMNOLENCE [None]
  - RED BLOOD CELL SEDIMENTATION RATE INCREASED [None]
